FAERS Safety Report 8081029-1 (Version None)
Quarter: 2012Q1

REPORT INFORMATION
  Report Type: 
  Country: None (occurrence: None)
  Receive Date: 20120130
  Receipt Date: 20120119
  Transmission Date: 20120608
  Serious: Yes (Other)
  Sender: FDA-Public Use
  Company Number: US-JNJFOC-20120109499

PATIENT
  Age: 43 Year
  Sex: Female

DRUGS (4)
  1. NICORETTE [Concomitant]
     Indication: PRODUCT USED FOR UNKNOWN INDICATION
     Route: 048
     Dates: start: 20120101
  2. HYDROCORTISONE [Suspect]
     Indication: THERMAL BURN
     Route: 061
     Dates: start: 20120101
  3. NICORETTE [Concomitant]
     Indication: PRODUCT USED FOR UNKNOWN INDICATION
     Route: 048
     Dates: start: 20120101
  4. BENADRYL [Suspect]
     Indication: THERMAL BURN
     Route: 061
     Dates: start: 20120101

REACTIONS (2)
  - THERMAL BURN [None]
  - OFF LABEL USE [None]
